FAERS Safety Report 25185458 (Version 1)
Quarter: 2025Q2

REPORT INFORMATION
  Report Type: Spontaneous
  Country: US (occurrence: None)
  Receive Date: 20250409
  Receipt Date: 20250409
  Transmission Date: 20250716
  Serious: Yes (Other)
  Sender: FDA-CTU
  Company Number: None

PATIENT
  Age: 40 Year
  Sex: Male
  Weight: 112.94 kg

DRUGS (1)
  1. WEGOVY [Suspect]
     Active Substance: SEMAGLUTIDE
     Indication: Obesity
     Dosage: OTHER STRENGTH : 1.7 UGM;?OTHER QUANTITY : 1.7 UGM;?FREQUENCY : WEEKLY;?
     Route: 058
     Dates: start: 20240705, end: 20250217

REACTIONS (10)
  - Headache [None]
  - Anxiety [None]
  - Insomnia [None]
  - Blepharospasm [None]
  - Middle insomnia [None]
  - Visual impairment [None]
  - Hot flush [None]
  - Visual field defect [None]
  - Therapy cessation [None]
  - Feeling abnormal [None]

NARRATIVE: CASE EVENT DATE: 20250218
